FAERS Safety Report 12381840 (Version 1)
Quarter: 2016Q2

REPORT INFORMATION
  Report Type: Spontaneous
  Country: US (occurrence: None)
  Receive Date: 20160517
  Receipt Date: 20160517
  Transmission Date: 20160815
  Serious: No
  Sender: FDA-Public Use
  Company Number: None

PATIENT
  Age: 82 Year
  Sex: Male

DRUGS (1)
  1. ZYTIGA [Suspect]
     Active Substance: ABIRATERONE ACETATE
     Indication: PROSTATE CANCER
     Dosage: 4 TABS QD PO
     Route: 048
     Dates: start: 20160219, end: 20160516

REACTIONS (2)
  - Prostatic specific antigen increased [None]
  - Drug ineffective [None]

NARRATIVE: CASE EVENT DATE: 20160511
